FAERS Safety Report 9416725 (Version 3)
Quarter: 2013Q4

REPORT INFORMATION
  Report Type: Spontaneous
  Country: US (occurrence: US)
  Receive Date: 20130724
  Receipt Date: 20131030
  Transmission Date: 20140711
  Serious: Yes (Other)
  Sender: FDA-Public Use
  Company Number: US-PFIZER INC-2013212251

PATIENT
  Age: 65 Year
  Sex: Female

DRUGS (2)
  1. XALKORI [Suspect]
     Indication: COLON CANCER
     Dosage: 250 MG, 2X/DAY
     Route: 048
     Dates: start: 20120217
  2. XALKORI [Suspect]
     Dosage: 250 MG, DAILY
     Route: 048

REACTIONS (11)
  - Off label use [Unknown]
  - Oedema peripheral [Unknown]
  - Abasia [Unknown]
  - Dysgeusia [Not Recovered/Not Resolved]
  - Fatigue [Unknown]
  - Myalgia [Unknown]
  - Constipation [Unknown]
  - Visual impairment [Unknown]
  - Fluid retention [Unknown]
  - Nausea [Recovering/Resolving]
  - Alopecia [Unknown]
